FAERS Safety Report 22525763 (Version 2)
Quarter: 2023Q2

REPORT INFORMATION
  Report Type: Spontaneous
  Country: FR (occurrence: FR)
  Receive Date: 20230606
  Receipt Date: 20230612
  Transmission Date: 20230721
  Serious: Yes (Other)
  Sender: FDA-Public Use
  Company Number: FR-BIOVITRUM-2021FR11377

PATIENT
  Age: 34 Year
  Sex: Male

DRUGS (3)
  1. KINERET [Suspect]
     Active Substance: ANAKINRA
     Indication: Still^s disease
     Dosage: 3 INJECTIONS OF KINERET 100MG/0.67ML PER WEEK
     Route: 065
     Dates: start: 2005, end: 20230416
  2. KINERET [Suspect]
     Active Substance: ANAKINRA
     Indication: Rheumatoid arthritis
  3. ASTRAGALUS [Concomitant]
     Indication: Product used for unknown indication
     Dates: start: 2021

REACTIONS (14)
  - Syncope [Unknown]
  - Loss of consciousness [Unknown]
  - Intentional product misuse [Not Recovered/Not Resolved]
  - Hot flush [Unknown]
  - Cold sweat [Unknown]
  - Dizziness [Unknown]
  - Head injury [Unknown]
  - Product administration error [Unknown]
  - Feeling hot [Unknown]
  - Heart rate decreased [Unknown]
  - Chest discomfort [Unknown]
  - Feeling cold [Unknown]
  - Chills [Unknown]
  - Neck pain [Unknown]

NARRATIVE: CASE EVENT DATE: 20050101
